FAERS Safety Report 10188753 (Version 1)
Quarter: 2014Q2

REPORT INFORMATION
  Report Type: Spontaneous
  Country: US (occurrence: None)
  Receive Date: 20140521
  Receipt Date: 20140521
  Transmission Date: 20141212
  Serious: No
  Sender: FDA-Public Use
  Company Number: None

PATIENT
  Age: 50 Year
  Sex: Female
  Weight: 113.4 kg

DRUGS (1)
  1. PROAIR HFA 90MCG [Suspect]
     Indication: ASTHMA
     Dosage: 2 PUFFS
     Route: 055
     Dates: start: 20140506, end: 20140506

REACTIONS (12)
  - Dizziness [None]
  - Head discomfort [None]
  - Nausea [None]
  - Respiratory disorder [None]
  - Balance disorder [None]
  - Vision blurred [None]
  - Eye disorder [None]
  - Cardiac disorder [None]
  - Dysstasia [None]
  - Gait disturbance [None]
  - Ear discomfort [None]
  - Product substitution issue [None]
